FAERS Safety Report 10020134 (Version 1)
Quarter: 2014Q1

REPORT INFORMATION
  Report Type: Spontaneous
  Country: SE (occurrence: SE)
  Receive Date: 20140319
  Receipt Date: 20140319
  Transmission Date: 20141002
  Serious: Yes (Other)
  Sender: FDA-Public Use
  Company Number: SE-JNJFOC-20140307388

PATIENT
  Age: 62 Year
  Sex: Female

DRUGS (1)
  1. PEVARYL [Suspect]
     Indication: PRODUCT USED FOR UNKNOWN INDICATION
     Route: 065
     Dates: end: 20130930

REACTIONS (3)
  - Deafness [Unknown]
  - Tympanic membrane perforation [Unknown]
  - Pain [Unknown]
